FAERS Safety Report 5674487-0 (Version None)
Quarter: 2008Q1

REPORT INFORMATION
  Report Type: 
  Country: None (occurrence: None)
  Receive Date: 20080317
  Receipt Date: 20080229
  Transmission Date: 20080703
  Serious: Yes (Hospitalization)
  Sender: FDA-Public Use
  Company Number: 2008JP000972

PATIENT
  Age: 87 Year
  Sex: Male

DRUGS (8)
  1. PROGRAF [Suspect]
     Indication: RHEUMATOID ARTHRITIS
     Dosage: 1 MG, UID/QD, ORAL; 2 MG, UID/QD, ORAL; 1 MG, UID/QD, ORAL
     Route: 048
     Dates: start: 20061023, end: 20070214
  2. PROGRAF [Suspect]
     Indication: RHEUMATOID ARTHRITIS
     Dosage: 1 MG, UID/QD, ORAL; 2 MG, UID/QD, ORAL; 1 MG, UID/QD, ORAL
     Route: 048
     Dates: start: 20070215, end: 20080124
  3. PROGRAF [Suspect]
     Indication: RHEUMATOID ARTHRITIS
     Dosage: 1 MG, UID/QD, ORAL; 2 MG, UID/QD, ORAL; 1 MG, UID/QD, ORAL
     Route: 048
     Dates: start: 20080124, end: 20080214
  4. ENBREL [Concomitant]
  5. PREDNISOLONE TAB [Concomitant]
  6. TAGAMET            (CIMETIDINE) PER ORAL NOS [Concomitant]
  7. SELBEX         (TEPRENONE) PER ORAL NOS [Concomitant]
  8. MAGNESIUM OXIDE               (MAGNESIUM OXIDE) PER ORAL NOS [Concomitant]

REACTIONS (2)
  - ELECTROLYTE IMBALANCE [None]
  - RENAL IMPAIRMENT [None]
